FAERS Safety Report 18734028 (Version 1)
Quarter: 2021Q1

REPORT INFORMATION
  Report Type: Spontaneous
  Country: US (occurrence: US)
  Receive Date: 20210113
  Receipt Date: 20210113
  Transmission Date: 20210419
  Serious: Yes (Hospitalization, Other)
  Sender: FDA-Public Use
  Company Number: US-TILLOMED LABORATORIES LTD.-2021-EPL-000052

PATIENT
  Age: 29 Year
  Sex: Female

DRUGS (5)
  1. MAGNESIUM SULFATE. [Suspect]
     Active Substance: MAGNESIUM SULFATE
     Indication: PRE-ECLAMPSIA
     Dosage: UNK
     Route: 042
  2. LABETALOL [Concomitant]
     Active Substance: LABETALOL\LABETALOL HYDROCHLORIDE
     Indication: PRE-ECLAMPSIA
     Route: 042
  3. MIRALAX [Concomitant]
     Active Substance: POLYETHYLENE GLYCOL 3350
     Indication: ABDOMINAL PAIN
     Dosage: UNK
  4. NIFEDIPINE. [Suspect]
     Active Substance: NIFEDIPINE
     Indication: PRE-ECLAMPSIA
     Dosage: UNK
  5. MILK OF MAGNESIA [Suspect]
     Active Substance: MAGNESIUM HYDROXIDE
     Indication: ABDOMINAL PAIN
     Dosage: UNK

REACTIONS (3)
  - Renal failure [Recovered/Resolved]
  - Cardiotoxicity [Unknown]
  - Toxicity to various agents [Unknown]
